FAERS Safety Report 24298589 (Version 1)
Quarter: 2024Q3

REPORT INFORMATION
  Report Type: Spontaneous
  Country: US (occurrence: None)
  Receive Date: 20240906
  Receipt Date: 20240906
  Transmission Date: 20241017
  Serious: No
  Sender: Public
  Company Number: None

PATIENT
  Sex: Female

DRUGS (2)
  1. WINREVAIR [Suspect]
     Active Substance: SOTATERCEPT-CSRK
     Dosage: OTHER FREQUENCY : EVERY3WEEKS;?
     Route: 058
     Dates: start: 202406
  2. ZYRTEC [Concomitant]

REACTIONS (5)
  - Respiration abnormal [None]
  - Condition aggravated [None]
  - Hypersensitivity [None]
  - Dizziness [None]
  - Pulmonary hypertension [None]
